FAERS Safety Report 9305161 (Version 1)
Quarter: 2013Q2

REPORT INFORMATION
  Report Type: Spontaneous
  Country: BR (occurrence: BR)
  Receive Date: 20130523
  Receipt Date: 20130523
  Transmission Date: 20140414
  Serious: Yes (Hospitalization, Other)
  Sender: FDA-Public Use
  Company Number: PHHY2013BR051377

PATIENT
  Age: 65 Year
  Sex: Male

DRUGS (4)
  1. TRILEPTAL [Suspect]
     Indication: CONVULSION
     Dosage: UNK UKN, UNK
  2. TRILEPTAL [Suspect]
     Dosage: 300 MG, BID
  3. TRILEPTAL [Suspect]
     Dosage: 900 MG, DAILY (FIRST DOSE OF 300 MG AND SECOND DOSE OF 600 MG)
     Route: 048
     Dates: start: 20130520
  4. PONDERA [Concomitant]
     Indication: ANTIDEPRESSANT THERAPY
     Dosage: UNK UKN, UNK

REACTIONS (3)
  - Pulmonary fibrosis [Unknown]
  - Convulsion [Unknown]
  - Incorrect dose administered [Unknown]
